FAERS Safety Report 17360838 (Version 2)
Quarter: 2020Q1

REPORT INFORMATION
  Report Type: Spontaneous
  Country: SK (occurrence: SK)
  Receive Date: 20200203
  Receipt Date: 20200217
  Transmission Date: 20200409
  Serious: Yes (Death, Other)
  Sender: FDA-Public Use
  Company Number: NVSC2020SK022033

PATIENT
  Sex: Female

DRUGS (1)
  1. KISQALI [Suspect]
     Active Substance: RIBOCICLIB
     Indication: BREAST CANCER METASTATIC
     Dosage: 600 MG, QD (2 MONTHS)
     Route: 048

REACTIONS (3)
  - Breast cancer metastatic [Fatal]
  - Cholestasis [Recovering/Resolving]
  - Malignant neoplasm progression [Fatal]
